FAERS Safety Report 21986037 (Version 1)
Quarter: 2023Q1

REPORT INFORMATION
  Report Type: Report from Study
  Country: TH (occurrence: None)
  Receive Date: 20230213
  Receipt Date: 20230213
  Transmission Date: 20230418
  Serious: Yes (Death, Hospitalization)
  Sender: FDA-Public Use
  Company Number: 2022A119421

PATIENT
  Age: 28170 Day
  Sex: Male

DRUGS (15)
  1. TAGRISSO [Suspect]
     Active Substance: OSIMERTINIB
     Indication: Non-small cell lung cancer metastatic
     Dosage: 1 TABS OD
     Route: 048
     Dates: start: 20200923
  2. TAGRISSO [Suspect]
     Active Substance: OSIMERTINIB
     Indication: Non-small cell lung cancer metastatic
     Dosage: 2 TABS OD
     Route: 048
     Dates: start: 20220225
  3. VITAMIN B COMPLEX [Concomitant]
     Active Substance: CYANOCOBALAMIN\DEXPANTHENOL\NIACINAMIDE\PYRIDOXINE HYDROCHLORIDE\RIBOFLAVIN 5^-PHOSPHATE SODIUM\THIA
     Dosage: 1X1 PC MORNING
  4. CETIRIZINE [Concomitant]
     Active Substance: CETIRIZINE HYDROCHLORIDE
     Dosage: 1X1 OD MORNING
  5. ISONIAZID [Concomitant]
     Active Substance: ISONIAZID
     Dosage: 3 TABS HS
  6. RIFAMPIN [Concomitant]
     Active Substance: RIFAMPIN
     Dosage: 2 TABS HS
  7. SENOKOT [Concomitant]
     Active Substance: SENNOSIDES
     Dosage: 2 TABS OD
  8. UREA [Concomitant]
     Active Substance: UREA
     Dosage: APPLY BID
  9. VITAMIN B6 [Concomitant]
     Active Substance: PYRIDOXINE HYDROCHLORIDE
  10. PIRIDOXINE HCL [Concomitant]
     Dosage: 1 TAB PC MORNING
  11. ENALAPRIL [Concomitant]
     Active Substance: ENALAPRIL
     Dosage: 1X1 PC MORNING
  12. LINAGLIPTIN [Concomitant]
     Active Substance: LINAGLIPTIN
     Dosage: 1X1 PC MORNING
  13. RIVOTRIL [Concomitant]
     Active Substance: CLONAZEPAM
     Dosage: 1/2 X1 HS
  14. KARI UNI [Concomitant]
  15. CARBOXYMETHYLCELLULOSE SODIUM\GLYCERIN [Concomitant]
     Active Substance: CARBOXYMETHYLCELLULOSE SODIUM\GLYCERIN
     Dosage: BOTH EYES BID

REACTIONS (5)
  - Death [Fatal]
  - Metastases to central nervous system [Recovering/Resolving]
  - Normal pressure hydrocephalus [Recovering/Resolving]
  - Central nervous system infection [Recovering/Resolving]
  - Off label use [Unknown]

NARRATIVE: CASE EVENT DATE: 20220225
